FAERS Safety Report 6232284-1 (Version None)
Quarter: 2009Q2

REPORT INFORMATION
  Report Type: 
  Country: None (occurrence: None)
  Receive Date: 20090617
  Receipt Date: 20090604
  Transmission Date: 20091009
  Serious: Yes (Other)
  Sender: FDA-Public Use
  Company Number: US-PFIZER INC-2009223331

PATIENT
  Sex: Male

DRUGS (2)
  1. CHANTIX [Suspect]
  2. NICODERM CQ [Suspect]

REACTIONS (4)
  - ERYTHEMA [None]
  - NIGHTMARE [None]
  - PRURITUS [None]
  - SURGERY [None]
